FAERS Safety Report 25840851 (Version 1)
Quarter: 2025Q3

REPORT INFORMATION
  Report Type: Spontaneous
  Country: CA (occurrence: CA)
  Receive Date: 20250924
  Receipt Date: 20250924
  Transmission Date: 20251020
  Serious: Yes (Hospitalization)
  Sender: MYLAN
  Company Number: CA-MYLANLABS-2025M1080951

PATIENT
  Age: 7 Decade
  Sex: Male

DRUGS (76)
  1. PREGABALIN [Suspect]
     Active Substance: PREGABALIN
     Indication: Neuropathy peripheral
  2. PREGABALIN [Suspect]
     Active Substance: PREGABALIN
     Route: 065
  3. PREGABALIN [Suspect]
     Active Substance: PREGABALIN
     Route: 065
  4. PREGABALIN [Suspect]
     Active Substance: PREGABALIN
  5. DULOXETINE [Suspect]
     Active Substance: DULOXETINE
     Indication: Neuropathy peripheral
     Route: 065
  6. DULOXETINE [Suspect]
     Active Substance: DULOXETINE
  7. DULOXETINE [Suspect]
     Active Substance: DULOXETINE
  8. DULOXETINE [Suspect]
     Active Substance: DULOXETINE
     Route: 065
  9. DULOXETINE [Suspect]
     Active Substance: DULOXETINE
     Dosage: 60 MILLIGRAM, QD
     Route: 065
  10. DULOXETINE [Suspect]
     Active Substance: DULOXETINE
     Dosage: 60 MILLIGRAM, QD
  11. DULOXETINE [Suspect]
     Active Substance: DULOXETINE
     Dosage: 60 MILLIGRAM, QD
  12. DULOXETINE [Suspect]
     Active Substance: DULOXETINE
     Dosage: 60 MILLIGRAM, QD
     Route: 065
  13. DULOXETINE [Suspect]
     Active Substance: DULOXETINE
     Dosage: 120 MILLIGRAM, QD
  14. DULOXETINE [Suspect]
     Active Substance: DULOXETINE
     Dosage: 120 MILLIGRAM, QD
  15. DULOXETINE [Suspect]
     Active Substance: DULOXETINE
     Dosage: 120 MILLIGRAM, QD
     Route: 065
  16. DULOXETINE [Suspect]
     Active Substance: DULOXETINE
     Dosage: 120 MILLIGRAM, QD
     Route: 065
  17. DULOXETINE [Suspect]
     Active Substance: DULOXETINE
  18. DULOXETINE [Suspect]
     Active Substance: DULOXETINE
  19. DULOXETINE [Suspect]
     Active Substance: DULOXETINE
     Route: 065
  20. DULOXETINE [Suspect]
     Active Substance: DULOXETINE
     Route: 065
  21. MORPHINE [Suspect]
     Active Substance: MORPHINE
     Indication: Neuropathy peripheral
  22. MORPHINE [Suspect]
     Active Substance: MORPHINE
     Route: 065
  23. MORPHINE [Suspect]
     Active Substance: MORPHINE
     Route: 065
  24. MORPHINE [Suspect]
     Active Substance: MORPHINE
  25. ESCITALOPRAM [Suspect]
     Active Substance: ESCITALOPRAM OXALATE
     Indication: Neuropathy peripheral
     Dosage: 20 MILLIGRAM, QD
  26. ESCITALOPRAM [Suspect]
     Active Substance: ESCITALOPRAM OXALATE
     Dosage: 20 MILLIGRAM, QD
     Route: 065
  27. ESCITALOPRAM [Suspect]
     Active Substance: ESCITALOPRAM OXALATE
     Dosage: 20 MILLIGRAM, QD
     Route: 065
  28. ESCITALOPRAM [Suspect]
     Active Substance: ESCITALOPRAM OXALATE
     Dosage: 20 MILLIGRAM, QD
  29. TOPIRAMATE [Suspect]
     Active Substance: TOPIRAMATE
     Indication: Neuropathy peripheral
     Dosage: 200 MILLIGRAM, QD
  30. TOPIRAMATE [Suspect]
     Active Substance: TOPIRAMATE
     Dosage: 200 MILLIGRAM, QD
  31. TOPIRAMATE [Suspect]
     Active Substance: TOPIRAMATE
     Dosage: 200 MILLIGRAM, QD
     Route: 065
  32. TOPIRAMATE [Suspect]
     Active Substance: TOPIRAMATE
     Dosage: 200 MILLIGRAM, QD
     Route: 065
  33. TOPIRAMATE [Suspect]
     Active Substance: TOPIRAMATE
     Dosage: 300 MILLIGRAM, QD
  34. TOPIRAMATE [Suspect]
     Active Substance: TOPIRAMATE
     Dosage: 300 MILLIGRAM, QD
  35. TOPIRAMATE [Suspect]
     Active Substance: TOPIRAMATE
     Dosage: 300 MILLIGRAM, QD
     Route: 065
  36. TOPIRAMATE [Suspect]
     Active Substance: TOPIRAMATE
     Dosage: 300 MILLIGRAM, QD
     Route: 065
  37. ACETAMINOPHEN [Suspect]
     Active Substance: ACETAMINOPHEN
     Indication: Neuropathy peripheral
  38. ACETAMINOPHEN [Suspect]
     Active Substance: ACETAMINOPHEN
     Route: 065
  39. ACETAMINOPHEN [Suspect]
     Active Substance: ACETAMINOPHEN
     Route: 065
  40. ACETAMINOPHEN [Suspect]
     Active Substance: ACETAMINOPHEN
  41. NALTREXONE [Suspect]
     Active Substance: NALTREXONE
     Indication: Nervous system disorder
     Dosage: 3 MILLIGRAM, BID
  42. NALTREXONE [Suspect]
     Active Substance: NALTREXONE
     Dosage: 3 MILLIGRAM, BID
     Route: 065
  43. NALTREXONE [Suspect]
     Active Substance: NALTREXONE
     Dosage: 3 MILLIGRAM, BID
     Route: 065
  44. NALTREXONE [Suspect]
     Active Substance: NALTREXONE
     Dosage: 3 MILLIGRAM, BID
  45. OXCARBAZEPINE [Suspect]
     Active Substance: OXCARBAZEPINE
     Indication: Neuropathy peripheral
  46. OXCARBAZEPINE [Suspect]
     Active Substance: OXCARBAZEPINE
  47. OXCARBAZEPINE [Suspect]
     Active Substance: OXCARBAZEPINE
     Route: 065
  48. OXCARBAZEPINE [Suspect]
     Active Substance: OXCARBAZEPINE
     Route: 065
  49. OXCARBAZEPINE [Suspect]
     Active Substance: OXCARBAZEPINE
     Dosage: 1800 MILLIGRAM, QD
  50. OXCARBAZEPINE [Suspect]
     Active Substance: OXCARBAZEPINE
     Dosage: 1800 MILLIGRAM, QD
  51. OXCARBAZEPINE [Suspect]
     Active Substance: OXCARBAZEPINE
     Dosage: 1800 MILLIGRAM, QD
     Route: 065
  52. OXCARBAZEPINE [Suspect]
     Active Substance: OXCARBAZEPINE
     Dosage: 1800 MILLIGRAM, QD
     Route: 065
  53. KETAMINE [Concomitant]
     Active Substance: KETAMINE
     Indication: Neuropathy peripheral
     Dosage: 5 MILLIGRAM, QH
  54. KETAMINE [Concomitant]
     Active Substance: KETAMINE
     Dosage: 5 MILLIGRAM, QH
  55. KETAMINE [Concomitant]
     Active Substance: KETAMINE
     Dosage: 5 MILLIGRAM, QH
     Route: 042
  56. KETAMINE [Concomitant]
     Active Substance: KETAMINE
     Dosage: 5 MILLIGRAM, QH
     Route: 042
  57. KETAMINE [Concomitant]
     Active Substance: KETAMINE
     Dosage: 30 MILLIGRAM, QH
  58. KETAMINE [Concomitant]
     Active Substance: KETAMINE
     Dosage: 30 MILLIGRAM, QH
  59. KETAMINE [Concomitant]
     Active Substance: KETAMINE
     Dosage: 30 MILLIGRAM, QH
     Route: 042
  60. KETAMINE [Concomitant]
     Active Substance: KETAMINE
     Dosage: 30 MILLIGRAM, QH
     Route: 042
  61. BUPROPION [Concomitant]
     Active Substance: BUPROPION
     Indication: Depression
     Dosage: 300 MILLIGRAM, QD
  62. BUPROPION [Concomitant]
     Active Substance: BUPROPION
     Dosage: 300 MILLIGRAM, QD
     Route: 065
  63. BUPROPION [Concomitant]
     Active Substance: BUPROPION
     Dosage: 300 MILLIGRAM, QD
     Route: 065
  64. BUPROPION [Concomitant]
     Active Substance: BUPROPION
     Dosage: 300 MILLIGRAM, QD
  65. AMLODIPINE [Concomitant]
     Active Substance: AMLODIPINE BESYLATE
     Indication: Blood pressure increased
  66. AMLODIPINE [Concomitant]
     Active Substance: AMLODIPINE BESYLATE
     Route: 065
  67. AMLODIPINE [Concomitant]
     Active Substance: AMLODIPINE BESYLATE
     Route: 065
  68. AMLODIPINE [Concomitant]
     Active Substance: AMLODIPINE BESYLATE
  69. MEMANTINE [Concomitant]
     Active Substance: MEMANTINE
     Indication: Autoimmune disorder
     Dosage: 20 MILLIGRAM, QD
  70. MEMANTINE [Concomitant]
     Active Substance: MEMANTINE
     Dosage: 20 MILLIGRAM, QD
     Route: 065
  71. MEMANTINE [Concomitant]
     Active Substance: MEMANTINE
     Dosage: 20 MILLIGRAM, QD
     Route: 065
  72. MEMANTINE [Concomitant]
     Active Substance: MEMANTINE
     Dosage: 20 MILLIGRAM, QD
  73. VORTIOXETINE [Concomitant]
     Active Substance: VORTIOXETINE
     Indication: Depression
     Dosage: 20 MILLIGRAM, QD
  74. VORTIOXETINE [Concomitant]
     Active Substance: VORTIOXETINE
     Dosage: 20 MILLIGRAM, QD
     Route: 065
  75. VORTIOXETINE [Concomitant]
     Active Substance: VORTIOXETINE
     Dosage: 20 MILLIGRAM, QD
     Route: 065
  76. VORTIOXETINE [Concomitant]
     Active Substance: VORTIOXETINE
     Dosage: 20 MILLIGRAM, QD

REACTIONS (2)
  - Drug ineffective [Unknown]
  - Off label use [Unknown]
